FAERS Safety Report 9127997 (Version 1)
Quarter: 2013Q1

REPORT INFORMATION
  Report Type: Spontaneous
  Country: US (occurrence: US)
  Receive Date: 20130228
  Receipt Date: 20130228
  Transmission Date: 20140127
  Serious: Yes (Hospitalization)
  Sender: FDA-Public Use
  Company Number: US-SANOFI-AVENTIS-2013SA018212

PATIENT
  Age: 65 Year
  Sex: Female
  Weight: 125 kg

DRUGS (5)
  1. AMBIEN [Suspect]
     Indication: SLEEP DISORDER
     Route: 048
  2. LYRICA [Concomitant]
     Indication: NEURALGIA
     Route: 048
     Dates: start: 20120807
  3. PILOCARPINE [Concomitant]
     Indication: DRY MOUTH
     Dates: start: 201208
  4. CYMBALTA [Concomitant]
     Indication: NEURALGIA
  5. TRAZODONE [Concomitant]
     Indication: SLEEP DISORDER
     Dates: end: 2012

REACTIONS (2)
  - Sinus disorder [Unknown]
  - Drug ineffective [Unknown]
